FAERS Safety Report 9110741 (Version 1)
Quarter: 2013Q1

REPORT INFORMATION
  Report Type: Spontaneous
  Country: US (occurrence: US)
  Receive Date: 20130219
  Receipt Date: 20130219
  Transmission Date: 20140127
  Serious: No
  Sender: FDA-Public Use
  Company Number: US-BRISTOL-MYERS SQUIBB COMPANY-16754434

PATIENT
  Age: 46 Year
  Sex: Female
  Weight: 70.29 kg

DRUGS (3)
  1. ABATACEPT SUBQ INJECTION 125MG/ML [Suspect]
     Indication: RHEUMATOID ARTHRITIS
     Dosage: LAST DATE OF INJECTION:  04JUL2012
     Route: 058
     Dates: start: 201203
  2. MOBIC [Concomitant]
  3. TRAMADOL [Concomitant]

REACTIONS (4)
  - Platelet count increased [Not Recovered/Not Resolved]
  - Inflammation [Not Recovered/Not Resolved]
  - Headache [Not Recovered/Not Resolved]
  - Fungal infection [Recovered/Resolved]
